FAERS Safety Report 7641235-4 (Version None)
Quarter: 2011Q3

REPORT INFORMATION
  Report Type: 
  Country: None (occurrence: None)
  Receive Date: 20110728
  Receipt Date: 20110725
  Transmission Date: 20111222
  Serious: Yes (Death)
  Sender: FDA-Public Use
  Company Number: PHHY2011JP54819

PATIENT
  Sex: Male
  Weight: 69 kg

DRUGS (5)
  1. CALBLOCK [Concomitant]
     Indication: HYPERTENSION
     Dosage: 16 MG, UNK
     Route: 048
     Dates: start: 20060501
  2. ZANTAC [Concomitant]
     Dosage: 150 MG, UNK
     Route: 048
     Dates: start: 20000101
  3. CINACALCET HYDROCHLORIDE [Concomitant]
     Dosage: 50 MG, UNK
     Route: 048
     Dates: start: 20080410
  4. VALSARTAN [Suspect]
     Indication: HYPERTENSION
     Dosage: 80 MG, BID
     Route: 048
     Dates: start: 20080425
  5. FOLIC ACID [Concomitant]
     Dosage: 5 MG, UNK
     Route: 048
     Dates: start: 20000101

REACTIONS (1)
  - RENAL FAILURE CHRONIC [None]
